FAERS Safety Report 7929654-X (Version None)
Quarter: 2011Q4

REPORT INFORMATION
  Report Type: 
  Country: None (occurrence: None)
  Receive Date: 20111121
  Receipt Date: 20111117
  Transmission Date: 20120403
  Serious: Yes (Other)
  Sender: FDA-Public Use
  Company Number: US-PFIZER INC-2011021376

PATIENT
  Sex: Female
  Weight: 87.982 kg

DRUGS (18)
  1. ZETIA [Concomitant]
     Indication: BLOOD CHOLESTEROL INCREASED
     Dosage: UNK
  2. XANAX [Concomitant]
     Indication: ANXIETY
     Dosage: UNK
  3. CHANTIX [Suspect]
     Dosage: UNK
     Dates: start: 20100101
  4. LIPITOR [Concomitant]
     Dosage: UNK
  5. CHANTIX [Suspect]
     Dosage: 1 MG, 2X/DAY
     Dates: start: 20111108
  6. VICODIN [Concomitant]
     Indication: PAIN
     Dosage: UNK, AS NEEDED
  7. CHANTIX [Suspect]
     Dosage: 1 MG, 1X/DAY
     Dates: start: 20110101, end: 20110101
  8. SOMA [Concomitant]
     Dosage: UNK
  9. PAXIL [Concomitant]
     Dosage: UNK
  10. CHANTIX [Suspect]
     Indication: SMOKING CESSATION THERAPY
     Dosage: 0.5 MG, 1X/DAY
     Route: 048
     Dates: start: 20091101
  11. ZANTAC [Concomitant]
     Indication: DYSPEPSIA
     Dosage: UNK
  12. CHANTIX [Suspect]
     Dosage: 2 MG, 1X/DAY
     Route: 048
     Dates: start: 20110127, end: 20110101
  13. LASIX [Concomitant]
     Indication: FLUID RETENTION
     Dosage: UNK
  14. ADVAIR DISKUS 100/50 [Concomitant]
     Indication: DYSPNOEA
     Dosage: UNK
  15. CHANTIX [Suspect]
     Dosage: 1 MG, 2X/DAY
     Dates: start: 20110118, end: 20110101
  16. PROMETHAZINE [Concomitant]
     Indication: NAUSEA
     Dosage: UNK, AS NEEDED
  17. CHANTIX [Suspect]
     Dosage: 2 MG, 1X/DAY
     Route: 048
     Dates: start: 20101001
  18. FISH OIL [Concomitant]
     Dosage: UNK

REACTIONS (16)
  - ANXIETY [None]
  - DRUG INEFFECTIVE [None]
  - WRONG TECHNIQUE IN DRUG USAGE PROCESS [None]
  - DYSPNOEA [None]
  - TREATMENT NONCOMPLIANCE [None]
  - OROPHARYNGEAL PAIN [None]
  - INFLUENZA [None]
  - STRESS [None]
  - DEATH OF RELATIVE [None]
  - ABNORMAL DREAMS [None]
  - DYSGEUSIA [None]
  - ORAL MUCOSAL EXFOLIATION [None]
  - EYE IRRITATION [None]
  - DRUG DOSE OMISSION [None]
  - OEDEMA MOUTH [None]
  - MALAISE [None]
